FAERS Safety Report 7415807-6 (Version None)
Quarter: 2011Q2

REPORT INFORMATION
  Report Type: 
  Country: None (occurrence: None)
  Receive Date: 20110406
  Receipt Date: 20110322
  Transmission Date: 20111010
  Serious: Yes (Disabling, Congenital Anomaly)
  Sender: FDA-Public Use
  Company Number: 2011MA002754

PATIENT
  Age: 38 Year
  Sex: Female

DRUGS (2)
  1. PROPYLTHIOURACIL TABLETS, 50 MG (PUREPAC) (PROPYLTHIOURACIL) [Suspect]
     Indication: BASEDOW'S DISEASE
     Dosage: 200 MG;OD;PO
     Route: 048
  2. METHYLDOPA [Concomitant]

REACTIONS (9)
  - PREGNANCY [None]
  - BLOOD THYROID STIMULATING HORMONE INCREASED [None]
  - CAESAREAN SECTION [None]
  - TACHYCARDIA [None]
  - DRUG EXPOSURE DURING PREGNANCY [None]
  - POLYHYDRAMNIOS [None]
  - TREMOR [None]
  - THYROXINE FREE DECREASED [None]
  - TRI-IODOTHYRONINE INCREASED [None]
